FAERS Safety Report 4910092-9 (Version None)
Quarter: 2006Q1

REPORT INFORMATION
  Report Type: 
  Country: None (occurrence: None)
  Receive Date: 20060209
  Receipt Date: 20060123
  Transmission Date: 20060701
  Serious: Yes (Hospitalization, Other)
  Sender: FDA-Public Use
  Company Number: USA0509108747

PATIENT
  Age: 80 Year
  Sex: Male

DRUGS (3)
  1. FORTEO [Suspect]
     Indication: OSTEOPOROSIS
     Dosage: 20 UG, DAILY (1/D)
     Dates: start: 20050801
  2. FORTEO [Concomitant]
  3. FOSAMAX [Concomitant]

REACTIONS (2)
  - COLITIS [None]
  - THROMBOSIS [None]
